FAERS Safety Report 9204710 (Version 1)
Quarter: 2013Q1

REPORT INFORMATION
  Report Type: Spontaneous
  Country: US (occurrence: None)
  Receive Date: 20120709
  Receipt Date: 20120709
  Transmission Date: 20140127
  Serious: No
  Sender: FDA-Public Use
  Company Number: 2012HGS-003507

PATIENT
  Sex: Female

DRUGS (2)
  1. BENLYSTA [Suspect]
     Indication: SYSTEMIC LUPUS ERYTHEMATOSUS
     Route: 041
  2. BENADRYL (DIPHENHYDRAMINE HYDROCHLORIDE) [Suspect]
     Indication: RASH

REACTIONS (4)
  - Paradoxical drug reaction [None]
  - Dizziness [None]
  - Incoherent [None]
  - Rash [None]
